FAERS Safety Report 9706897 (Version 1)
Quarter: 2013Q4

REPORT INFORMATION
  Report Type: Spontaneous
  Country: ES (occurrence: ES)
  Receive Date: 20131125
  Receipt Date: 20131125
  Transmission Date: 20140711
  Serious: Yes (Hospitalization)
  Sender: FDA-Public Use
  Company Number: ES-JNJFOC-20131111920

PATIENT
  Sex: 0

DRUGS (2)
  1. EDURANT [Suspect]
     Indication: HIV INFECTION
     Route: 065
  2. ATRIPLA [Concomitant]

REACTIONS (1)
  - Hepatotoxicity [Recovered/Resolved]
